FAERS Safety Report 19916311 (Version 1)
Quarter: 2021Q4

REPORT INFORMATION
  Report Type: Spontaneous
  Country: US (occurrence: US)
  Receive Date: 20211004
  Receipt Date: 20211004
  Transmission Date: 20220304
  Serious: Yes (Other)
  Sender: FDA-Public Use
  Company Number: US-PFIZER INC-202101249442

PATIENT
  Age: 18 Year
  Sex: Female

DRUGS (3)
  1. LEVETIRACETAM [Suspect]
     Active Substance: LEVETIRACETAM
     Indication: Myoclonic dystonia
     Dosage: UNK
  2. CLONAZEPAM [Suspect]
     Active Substance: CLONAZEPAM
     Indication: Myoclonic dystonia
     Dosage: UNK
  3. TETRABENAZINE [Suspect]
     Active Substance: TETRABENAZINE
     Indication: Myoclonic dystonia
     Dosage: UNK

REACTIONS (3)
  - Drug ineffective for unapproved indication [Recovering/Resolving]
  - Loss of personal independence in daily activities [Recovering/Resolving]
  - Off label use [Unknown]
